FAERS Safety Report 6104082-0 (Version None)
Quarter: 2009Q1

REPORT INFORMATION
  Report Type: 
  Country: None (occurrence: None)
  Receive Date: 20090227
  Receipt Date: 20090216
  Transmission Date: 20090719
  Serious: Yes (Death)
  Sender: FDA-Public Use
  Company Number: GXKR2009CA02017

PATIENT
  Age: 67 Year
  Sex: Male

DRUGS (1)
  1. DEXAMETHASONE [Suspect]
     Indication: OPTIC NEUROPATHY
     Dosage: 4 MG, Q8H,

REACTIONS (27)
  - ABDOMINAL DISTENSION [None]
  - ASPERGILLOSIS [None]
  - ASPIRATION TRACHEAL ABNORMAL [None]
  - BILIARY DILATATION [None]
  - BLOOD CULTURE POSITIVE [None]
  - CANDIDIASIS [None]
  - CHOLELITHIASIS [None]
  - CONSTIPATION [None]
  - DEPRESSED LEVEL OF CONSCIOUSNESS [None]
  - ESCHERICHIA INFECTION [None]
  - GALLBLADDER DISORDER [None]
  - GASTROINTESTINAL INFLAMMATION [None]
  - HEADACHE [None]
  - HYPERAEMIA [None]
  - ILEUS [None]
  - INTESTINAL DILATATION [None]
  - INTESTINAL PERFORATION [None]
  - INTESTINAL RESECTION [None]
  - INTESTINAL STOMA [None]
  - MENINGITIS BACTERIAL [None]
  - MULTI-ORGAN FAILURE [None]
  - NAUSEA [None]
  - PYREXIA [None]
  - SEPTIC SHOCK [None]
  - SMALL INTESTINAL OBSTRUCTION [None]
  - STRONGYLOIDIASIS [None]
  - VOMITING [None]
